FAERS Safety Report 4426555-9 (Version None)
Quarter: 2004Q3

REPORT INFORMATION
  Report Type: 
  Country: None (occurrence: None)
  Receive Date: 20040816
  Receipt Date: 20040805
  Transmission Date: 20050211
  Serious: Yes (Hospitalization)
  Sender: FDA-Public Use
  Company Number: US-BRISTOL-MYERS SQUIBB COMPANY-12664413

PATIENT
  Age: 5 Decade
  Sex: Female

DRUGS (1)
  1. CARDIOLITE [Suspect]
     Indication: EXERCISE TEST
     Dosage: 8-10
     Route: 051
     Dates: start: 20031224

REACTIONS (1)
  - THROAT TIGHTNESS [None]
